FAERS Safety Report 16095113 (Version 2)
Quarter: 2019Q1

REPORT INFORMATION
  Report Type: Spontaneous
  Country: CH (occurrence: CH)
  Receive Date: 20190320
  Receipt Date: 20190325
  Transmission Date: 20190418
  Serious: Yes (Other)
  Sender: FDA-Public Use
  Company Number: CH-ROCHE-2284859

PATIENT
  Sex: Male

DRUGS (1)
  1. ESBRIET [Suspect]
     Active Substance: PIRFENIDONE
     Indication: INTERSTITIAL LUNG DISEASE
     Route: 048
     Dates: start: 201708

REACTIONS (3)
  - Off label use [Unknown]
  - Product use in unapproved indication [Unknown]
  - Lung infection [Recovered/Resolved]
